FAERS Safety Report 9390326 (Version 1)
Quarter: 2013Q3

REPORT INFORMATION
  Report Type: Spontaneous
  Country: CH (occurrence: CH)
  Receive Date: 20130709
  Receipt Date: 20130709
  Transmission Date: 20140515
  Serious: Yes (Hospitalization)
  Sender: FDA-Public Use
  Company Number: CH-ROCHE-1241602

PATIENT
  Sex: Male

DRUGS (8)
  1. PANTOZOL (SWITZERLAND) [Concomitant]
     Route: 048
  2. ENATEC [Concomitant]
     Route: 048
  3. LANTUS [Concomitant]
     Route: 058
  4. MABTHERA [Suspect]
     Indication: PRODUCT USED FOR UNKNOWN INDICATION
     Route: 050
     Dates: start: 20130513, end: 20130528
  5. ASPIRIN CARDIO [Concomitant]
     Route: 048
  6. PLAVIX [Concomitant]
     Route: 048
  7. SORTIS [Concomitant]
     Route: 048
     Dates: start: 201305
  8. TEMESTA (SWITZERLAND) [Concomitant]
     Route: 048

REACTIONS (2)
  - Hepatic enzyme increased [Recovering/Resolving]
  - Hepatocellular injury [Recovering/Resolving]
